FAERS Safety Report 14840568 (Version 2)
Quarter: 2020Q4

REPORT INFORMATION
  Report Type: Report from Study
  Country: US (occurrence: US)
  Receive Date: 20180503
  Receipt Date: 20201023
  Transmission Date: 20210113
  Serious: Yes (Death, Hospitalization)
  Sender: FDA-Public Use
  Company Number: US-ROCHE-2112906

PATIENT
  Age: 65 Year
  Sex: Female
  Weight: 90.2 kg

DRUGS (6)
  1. CARBOPLATIN. [Suspect]
     Active Substance: CARBOPLATIN
     Indication: NON-SMALL CELL LUNG CANCER
     Dosage: STRENGTH: 10 MG/ML?(AS PER PROTOCOL: AUC 2 BY VEIN ONCE A WEEK ON DAY 1 DURING RADIATION THERAPY. DU
     Route: 042
     Dates: start: 20171012
  2. CARBOPLATIN. [Suspect]
     Active Substance: CARBOPLATIN
     Dosage: STRENGTH: 10 MG/ML?(AS PER PROTOCOL: AUC 2 BY VEIN ONCE A WEEK ON DAY 1 DURING RADIATION THERAPY. DU
     Route: 042
     Dates: start: 20180118
  3. PACLITAXEL. [Suspect]
     Active Substance: PACLITAXEL
     Dosage: STRENGTH: 6 MG/ML?FURTHER SHE RECEIVED PACLITAXEL 50 MG/M2 ON 19/OCT/2017, 26/OCT/2017, 02/NOV/2017,
     Route: 042
     Dates: start: 20180118
  4. ATEZOLIZUMAB. [Suspect]
     Active Substance: ATEZOLIZUMAB
     Indication: NON-SMALL CELL LUNG CANCER
     Dosage: FURTHER SHE RECEIVED ATEZOLIZUMAB 1200 MG ON 02/NOV/2017.?(AS PER PROTOCOL: 1200 MG BY VEIN EVERY 3
     Route: 042
     Dates: start: 20171012
  5. ATEZOLIZUMAB. [Suspect]
     Active Substance: ATEZOLIZUMAB
     Dosage: FURTHER SHE RECEIVED ATEZOLIZUMAB 1200 MG ON 01/MAR/2018 AND 22/MAR/2018.?(AS PER PROTOCOL: 1200 MG
     Route: 042
     Dates: start: 20180118
  6. PACLITAXEL. [Suspect]
     Active Substance: PACLITAXEL
     Indication: NON-SMALL CELL LUNG CANCER
     Dosage: STRENGTH: 6 MG/ML?(AS PER PROTOCOL: 50 MG/M2 BY VEIN ONCE A WEEK ON DAY 1 DURING RADIATION THERAPY.
     Route: 042
     Dates: start: 20171012

REACTIONS (1)
  - Gastric haemorrhage [Fatal]

NARRATIVE: CASE EVENT DATE: 20180411
